FAERS Safety Report 25246391 (Version 1)
Quarter: 2025Q2

REPORT INFORMATION
  Report Type: Spontaneous
  Country: GB (occurrence: GB)
  Receive Date: 20250428
  Receipt Date: 20250428
  Transmission Date: 20250716
  Serious: Yes (Other)
  Sender: B BRAUN
  Company Number: GB-B.Braun Medical Inc.-2175739

PATIENT
  Sex: Male

DRUGS (6)
  1. ACETAMINOPHEN [Suspect]
     Active Substance: ACETAMINOPHEN
  2. CANDESARTAN [Suspect]
     Active Substance: CANDESARTAN
  3. ASTRAZENECA COVID-19 VACCINE [Suspect]
     Active Substance: AZD-1222
  4. VITAMIN D [Suspect]
     Active Substance: VITAMIN D NOS
  5. LEVOTHYROXINE SODIUM [Suspect]
     Active Substance: LEVOTHYROXINE SODIUM
  6. CITALOPRAM [Suspect]
     Active Substance: CITALOPRAM

REACTIONS (1)
  - Thrombosis with thrombocytopenia syndrome [Unknown]
